FAERS Safety Report 6527244-7 (Version None)
Quarter: 2009Q4

REPORT INFORMATION
  Report Type: 
  Country: None (occurrence: None)
  Receive Date: 20091222
  Receipt Date: 20091012
  Transmission Date: 20100525
  Serious: No
  Sender: FDA-Public Use
  Company Number: ALL1-2009-03160

PATIENT
  Age: 17 Year
  Sex: Male
  Weight: 72.6 kg

DRUGS (3)
  1. VYVANSE [Suspect]
     Indication: ATTENTION DEFICIT/HYPERACTIVITY DISORDER
     Dosage: 50; 40; 30 MG, 1X/DAY;QD, ORAL
     Route: 048
     Dates: start: 20090201, end: 20090501
  2. VYVANSE [Suspect]
     Indication: ATTENTION DEFICIT/HYPERACTIVITY DISORDER
     Dosage: 50; 40; 30 MG, 1X/DAY;QD, ORAL
     Route: 048
     Dates: start: 20090801, end: 20091001
  3. VYVANSE [Suspect]
     Indication: ATTENTION DEFICIT/HYPERACTIVITY DISORDER
     Dosage: 50; 40; 30 MG, 1X/DAY;QD, ORAL
     Route: 048
     Dates: start: 20091005

REACTIONS (5)
  - ANGER [None]
  - EMOTIONAL DISTRESS [None]
  - NEGATIVISM [None]
  - OFF LABEL USE [None]
  - PERSONALITY CHANGE [None]
